FAERS Safety Report 7746799-8 (Version None)
Quarter: 2011Q3

REPORT INFORMATION
  Report Type: 
  Country: None (occurrence: None)
  Receive Date: 20110907
  Receipt Date: 20110826
  Transmission Date: 20111222
  Serious: Yes (Hospitalization)
  Sender: FDA-Public Use
  Company Number: CIP11001385

PATIENT
  Age: 93 Year
  Sex: Male
  Weight: 84.0062 kg

DRUGS (1)
  1. ACTONEL [Suspect]
     Indication: OSTEOPOROSIS
     Dosage: 35 MG REGIMEN UNKNOWN, ORAL
     Route: 048
     Dates: start: 20030615

REACTIONS (3)
  - RENAL FAILURE [None]
  - CHEST PAIN [None]
  - ANAEMIA [None]
